FAERS Safety Report 4452371-8 (Version None)
Quarter: 2004Q3

REPORT INFORMATION
  Report Type: 
  Country: None (occurrence: None)
  Receive Date: 20040917
  Receipt Date: 20040907
  Transmission Date: 20050211
  Serious: Yes (Other)
  Sender: FDA-Public Use
  Company Number: PHEH2004US09603

PATIENT
  Age: 70 Year
  Sex: Female

DRUGS (4)
  1. ZOMETA [Suspect]
     Indication: MULTIPLE MYELOMA
     Dosage: 4 MG, QMO
     Dates: start: 20020101
  2. ZOLOFT [Concomitant]
     Indication: NEURALGIA
     Dates: start: 20020101
  3. KLONOPIN [Concomitant]
     Indication: NEURALGIA
     Dosage: .5 MG, QD
     Dates: start: 20020101
  4. SYNTHROID [Concomitant]
     Indication: HYPOTHYROIDISM
     Dosage: .1 MG, QD
     Dates: start: 20020101

REACTIONS (5)
  - ASEPTIC NECROSIS BONE [None]
  - FRACTURED SACRUM [None]
  - ILIUM FRACTURE [None]
  - PELVIC FRACTURE [None]
  - TOOTH INFECTION [None]
